FAERS Safety Report 5712263-0 (Version None)
Quarter: 2008Q2

REPORT INFORMATION
  Report Type: 
  Country: None (occurrence: None)
  Receive Date: 20080417
  Receipt Date: 20080408
  Transmission Date: 20081010
  Serious: Yes (Other)
  Sender: FDA-Public Use
  Company Number: 2008-02350

PATIENT
  Age: 43 Year
  Sex: Female
  Weight: 61.2 kg

DRUGS (33)
  1. NORCO [Suspect]
     Indication: BACK PAIN
     Dosage: 20 MG, Q4H
     Dates: end: 20020822
  2. NORCO [Suspect]
     Indication: BACK PAIN
     Dosage: 20 MG, Q4H
     Dates: start: 20000105
  3. ACTIQ [Suspect]
     Indication: BACK PAIN
     Dosage: VARIBLE DOSING, BUCCAL
     Route: 002
     Dates: start: 20020506, end: 20070130
  4. LORCET(PARACETAMOL) [Suspect]
     Indication: BACK PAIN
     Dates: start: 19991027
  5. OXYCONTIN [Suspect]
     Indication: BACK PAIN
     Dosage: 100 MG, DAILY; 140 MG, DAILY
     Dates: end: 20020822
  6. OXYCONTIN [Suspect]
     Indication: BACK PAIN
     Dosage: 100 MG, DAILY; 140 MG, DAILY
     Dates: start: 19991027
  7. ROXICET [Suspect]
     Dosage: 5/325 MG,
     Dates: start: 20001109
  8. STADOL NS(BUTORPHANOL TARTRATE) [Suspect]
     Indication: BACK PAIN
     Dosage: 10 MG/ML, NASAL
     Route: 045
     Dates: start: 20011109
  9. OXYCODONE HCL [Suspect]
     Indication: DRUG USE FOR UNKNOWN INDICATION
     Dosage: 10 MG, QID,
     Dates: start: 20020101, end: 20020101
  10. METHADONE HCL [Suspect]
     Indication: DRUG USE FOR UNKNOWN INDICATION
     Dosage: 10 MG, QID; 20 MG, TID; 10 MG, TID
     Dates: start: 20020822, end: 20020903
  11. METHADONE HCL [Suspect]
     Indication: DRUG USE FOR UNKNOWN INDICATION
     Dosage: 10 MG, QID; 20 MG, TID; 10 MG, TID
     Dates: start: 20020904, end: 20030609
  12. METHADONE HCL [Suspect]
     Indication: DRUG USE FOR UNKNOWN INDICATION
     Dosage: 10 MG, QID; 20 MG, TID; 10 MG, TID
     Dates: start: 20030610, end: 20040907
  13. DURAGESIC-100 [Suspect]
     Indication: BACK PAIN
     Dosage: 75 UG, Q1H, TRANSDERMAL; 100 UG, Q1H TRANSDERMAL; 75 UG, Q1H, TRANSDERMAL; 75 UG, Q1H, TRANSDERMAL
     Route: 062
     Dates: start: 20040907, end: 20050224
  14. DURAGESIC-100 [Suspect]
     Indication: BACK PAIN
     Dosage: 75 UG, Q1H, TRANSDERMAL; 100 UG, Q1H TRANSDERMAL; 75 UG, Q1H, TRANSDERMAL; 75 UG, Q1H, TRANSDERMAL
     Route: 062
     Dates: start: 20050225, end: 20050518
  15. DURAGESIC-100 [Suspect]
     Indication: BACK PAIN
     Dosage: 75 UG, Q1H, TRANSDERMAL; 100 UG, Q1H TRANSDERMAL; 75 UG, Q1H, TRANSDERMAL; 75 UG, Q1H, TRANSDERMAL
     Route: 062
     Dates: start: 20050519, end: 20051108
  16. DURAGESIC-100 [Suspect]
     Indication: BACK PAIN
     Dosage: 75 UG, Q1H, TRANSDERMAL; 100 UG, Q1H TRANSDERMAL; 75 UG, Q1H, TRANSDERMAL; 75 UG, Q1H, TRANSDERMAL
     Route: 062
     Dates: start: 20051109, end: 20060130
  17. DURAGESIC-100 [Suspect]
     Indication: BACK PAIN
     Dosage: 75 UG, Q1H, TRANSDERMAL; 100 UG, Q1H TRANSDERMAL; 75 UG, Q1H, TRANSDERMAL; 75 UG, Q1H, TRANSDERMAL
     Route: 062
     Dates: start: 20060131, end: 20070202
  18. DURAGESIC-100 [Suspect]
     Indication: BACK PAIN
     Dosage: 75 UG, Q1H, TRANSDERMAL; 100 UG, Q1H TRANSDERMAL; 75 UG, Q1H, TRANSDERMAL; 75 UG, Q1H, TRANSDERMAL
     Route: 062
     Dates: start: 20070203, end: 20070501
  19. MORPHINE SULFATE [Suspect]
     Indication: DRUG USE FOR UNKNOWN INDICATION
     Dosage: 15 MG,
     Dates: start: 20041210
  20. ENDOCET(PARACETAMOL) [Suspect]
     Indication: DRUG USE FOR UNKNOWN INDICATION
     Dosage: 5/325 MG,
     Dates: start: 20060329
  21. VICODIN ES [Suspect]
     Indication: DRUG USE FOR UNKNOWN INDICATION
     Dosage: 7.5/750 MG
     Dates: start: 20040507
  22. KADIAN [Suspect]
     Indication: DRUG USE FOR UNKNOWN INDICATION
     Dosage: 100 MG, BID
     Dates: start: 20060828, end: 20070130
  23. DILAUDID [Suspect]
     Dosage: 4 MG, TID, ORAL; 4 MG, QID, ORAL
     Route: 048
     Dates: start: 20060213, end: 20060918
  24. DILAUDID [Suspect]
     Dosage: 4 MG, TID, ORAL; 4 MG, QID, ORAL
     Route: 048
     Dates: start: 20060919, end: 20070131
  25. VALIUM [Concomitant]
  26. ZANAFLEX [Concomitant]
  27. DESYREL [Concomitant]
  28. ATIVAN [Concomitant]
  29. ZOLOFT [Concomitant]
  30. NEURONTIN [Concomitant]
  31. SEROQUEL [Concomitant]
  32. TOPAMAX [Concomitant]
  33. WELLBUTRIN [Concomitant]

REACTIONS (11)
  - ABNORMAL BEHAVIOUR [None]
  - DENTAL CARIES [None]
  - DEPRESSION [None]
  - DRUG ABUSE [None]
  - DRUG DEPENDENCE [None]
  - DYSARTHRIA [None]
  - INADEQUATE ANALGESIA [None]
  - OVERDOSE [None]
  - PARTNER STRESS [None]
  - TOOTH ABSCESS [None]
  - TOOTH LOSS [None]
